FAERS Safety Report 4642092-0 (Version None)
Quarter: 2005Q2

REPORT INFORMATION
  Report Type: 
  Country: None (occurrence: None)
  Receive Date: 20050421
  Receipt Date: 20050421
  Transmission Date: 20051028
  Serious: Yes (Death)
  Sender: FDA-Public Use
  Company Number: None

PATIENT
  Age: 49 Year
  Sex: Female
  Weight: 59 kg

DRUGS (7)
  1. TOPOTECAN 3.0 MG / M2  (THIS DRUG IS NOT SUSPECTED  A CAUSE FOR THIS D [Suspect]
     Indication: CERVIX CARCINOMA STAGE IV
     Dosage: 4.8 MG IV Q WK
     Route: 042
     Dates: start: 20050324
  2. MORPHINE [Concomitant]
  3. DILAUDID [Concomitant]
  4. ZOLOFT [Concomitant]
  5. QUINAPRIL [Concomitant]
  6. LEVAQUIN [Concomitant]
  7. FUROSEMIDE [Concomitant]

REACTIONS (2)
  - BACK PAIN [None]
  - METASTASES TO SPINE [None]
